FAERS Safety Report 15589062 (Version 2)
Quarter: 2019Q3

REPORT INFORMATION
  Report Type: Spontaneous
  Country: KR (occurrence: KR)
  Receive Date: 20181106
  Receipt Date: 20190722
  Transmission Date: 20191004
  Serious: Yes (Hospitalization, Other)
  Sender: FDA-Public Use
  Company Number: KR-BRISTOL-MYERS SQUIBB COMPANY-BMS-2018-103350

PATIENT
  Age: 65 Year
  Sex: Male

DRUGS (1)
  1. NIVOLUMAB [Suspect]
     Active Substance: NIVOLUMAB
     Indication: SINUS CANCER METASTATIC
     Dosage: UNK
     Route: 065
     Dates: start: 20170915

REACTIONS (3)
  - Hypovolaemic shock [Recovered/Resolved]
  - Protein-losing gastroenteropathy [Unknown]
  - Malignant neoplasm progression [Unknown]
